FAERS Safety Report 5916791-4 (Version None)
Quarter: 2008Q4

REPORT INFORMATION
  Report Type: 
  Country: None (occurrence: None)
  Receive Date: 20081013
  Receipt Date: 20081002
  Transmission Date: 20090506
  Serious: Yes (Disabling)
  Sender: FDA-Public Use
  Company Number: IE-PFIZER INC-2008079829

PATIENT
  Sex: Male
  Weight: 76.2 kg

DRUGS (1)
  1. CABASER [Suspect]
     Indication: PARKINSON'S DISEASE
     Dates: start: 20020601

REACTIONS (3)
  - DRUG INEFFECTIVE [None]
  - MEDICATION ERROR [None]
  - QUALITY OF LIFE DECREASED [None]
